FAERS Safety Report 6213869-5 (Version None)
Quarter: 2009Q2

REPORT INFORMATION
  Report Type: 
  Country: None (occurrence: None)
  Receive Date: 20090602
  Receipt Date: 20090602
  Transmission Date: 20091009
  Serious: Yes (Hospitalization)
  Sender: FDA-Public Use
  Company Number: None

PATIENT
  Age: 24 Year
  Sex: Male

DRUGS (2)
  1. FLUOXETINE [Suspect]
     Dosage: 20MG ONCE A DAY PO
     Route: 048
     Dates: start: 20081023, end: 20090601
  2. IBUPROFEN TABLETS [Suspect]

REACTIONS (2)
  - CHROMATURIA [None]
  - HAEMORRHAGE [None]
